FAERS Safety Report 13485374 (Version 1)
Quarter: 2017Q2

REPORT INFORMATION
  Report Type: Spontaneous
  Country: US (occurrence: US)
  Receive Date: 20170426
  Receipt Date: 20170426
  Transmission Date: 20170830
  Serious: No
  Sender: FDA-Public Use
  Company Number: None

PATIENT
  Age: 77 Year
  Sex: Male
  Weight: 86.18 kg

DRUGS (15)
  1. MAGNISIUM [Concomitant]
  2. NORVASC [Concomitant]
     Active Substance: AMLODIPINE BESYLATE
  3. LOPRESSOR [Suspect]
     Active Substance: METOPROLOL TARTRATE
     Indication: MYOCARDIAL INFARCTION
     Dosage: QUANTITY:ONE TABLET?FREQUENCY - ONCE A DAY WITH FOOD OR MILK
     Route: 048
     Dates: start: 20141014, end: 20141120
  4. COREG [Concomitant]
     Active Substance: CARVEDILOL
  5. LOPRESSOR [Suspect]
     Active Substance: METOPROLOL TARTRATE
     Indication: ANGINA PECTORIS
     Dosage: QUANTITY:ONE TABLET?FREQUENCY - ONCE A DAY WITH FOOD OR MILK
     Route: 048
     Dates: start: 20141014, end: 20141120
  6. SYNTHROID [Concomitant]
     Active Substance: LEVOTHYROXINE SODIUM
  7. MELATONIN [Concomitant]
     Active Substance: MELATONIN
  8. PRILOSEC [Concomitant]
     Active Substance: OMEPRAZOLE MAGNESIUM
  9. BRILINTA [Concomitant]
     Active Substance: TICAGRELOR
  10. VITAMIN D3 [Concomitant]
     Active Substance: CHOLECALCIFEROL
  11. COQ10 [Concomitant]
     Active Substance: UBIDECARENONE
  12. ASPRIN [Concomitant]
     Active Substance: ASPIRIN
  13. COZAAR [Concomitant]
     Active Substance: LOSARTAN POTASSIUM
  14. LOPRESSOR [Suspect]
     Active Substance: METOPROLOL TARTRATE
     Indication: HYPERTENSION
     Dosage: QUANTITY:ONE TABLET?FREQUENCY - ONCE A DAY WITH FOOD OR MILK
     Route: 048
     Dates: start: 20141014, end: 20141120
  15. PROBIOTIC [Concomitant]
     Active Substance: PROBIOTICS NOS

REACTIONS (13)
  - Agitation [None]
  - Visual impairment [None]
  - Dizziness [None]
  - Diarrhoea [None]
  - Drug ineffective [None]
  - Back pain [None]
  - Pain in extremity [None]
  - Cough [None]
  - Rash [None]
  - Eye pain [None]
  - Movement disorder [None]
  - Hallucination [None]
  - Coronary arterial stent insertion [None]

NARRATIVE: CASE EVENT DATE: 20141120
